FAERS Safety Report 23928881 (Version 2)
Quarter: 2025Q3

REPORT INFORMATION
  Report Type: Spontaneous
  Country: US (occurrence: US)
  Receive Date: 20240531
  Receipt Date: 20250703
  Transmission Date: 20251021
  Serious: No
  Sender: RADIUS PHARM
  Company Number: US-RADIUS HEALTH INC.-2024US001881

PATIENT
  Sex: Female

DRUGS (1)
  1. TYMLOS [Suspect]
     Active Substance: ABALOPARATIDE
     Indication: Senile osteoporosis
     Route: 058
     Dates: start: 20240315

REACTIONS (10)
  - Nausea [Unknown]
  - Heart rate increased [Unknown]
  - Orthostatic hypotension [Unknown]
  - Insomnia [Recovered/Resolved]
  - Fatigue [Recovered/Resolved]
  - Abdominal pain upper [Recovered/Resolved]
  - Abdominal distension [Unknown]
  - Abdominal discomfort [Unknown]
  - Anxiety [Unknown]
  - Urine calcium increased [Unknown]

NARRATIVE: CASE EVENT DATE: 20240101
